FAERS Safety Report 24613582 (Version 1)
Quarter: 2024Q4

REPORT INFORMATION
  Report Type: Spontaneous
  Country: NL (occurrence: NL)
  Receive Date: 20241113
  Receipt Date: 20241113
  Transmission Date: 20250115
  Serious: Yes (Other)
  Sender: AMGEN
  Company Number: NL-AMGEN-NLDSP2024222098

PATIENT
  Age: 83 Year
  Sex: Female
  Weight: 55 kg

DRUGS (1)
  1. ROMOSOZUMAB [Suspect]
     Active Substance: ROMOSOZUMAB
     Indication: Osteoporosis
     Dosage: UNK
     Route: 065

REACTIONS (4)
  - Thoracic vertebral fracture [Unknown]
  - Spinal compression fracture [Unknown]
  - Lumbar vertebral fracture [Unknown]
  - Bone density decreased [Unknown]
